FAERS Safety Report 6206263-4 (Version None)
Quarter: 2009Q2

REPORT INFORMATION
  Report Type: 
  Country: None (occurrence: None)
  Receive Date: 20090526
  Receipt Date: 20090512
  Transmission Date: 20091009
  Serious: Yes (Congenital Anomaly)
  Sender: FDA-Public Use
  Company Number: 340015K09USA

PATIENT

DRUGS (2)
  1. OVIDREL [Suspect]
     Indication: INFERTILITY FEMALE
     Dosage: TRANSPLACENTAL
     Route: 064
     Dates: start: 20080601, end: 20081101
  2. FOLLISTIM [Suspect]
     Indication: INFERTILITY
     Dosage: TRANSPLACENTAL
     Route: 064
     Dates: start: 20081001, end: 20081101

REACTIONS (3)
  - INTRA-UTERINE DEATH [None]
  - MATERNAL DRUGS AFFECTING FOETUS [None]
  - TRISOMY 22 [None]
